FAERS Safety Report 8332862-X (Version None)
Quarter: 2012Q1

REPORT INFORMATION
  Report Type: 
  Country: None (occurrence: None)
  Receive Date: 20120327
  Receipt Date: 20110106
  Transmission Date: 20120608
  Serious: Yes (Other)
  Sender: FDA-Public Use
  Company Number: PHEH2009US14492

PATIENT
  Age: 64 Year
  Sex: Female

DRUGS (13)
  1. GLEEVEC [Suspect]
     Indication: CHRONIC MYELOID LEUKAEMIA
     Dosage: 400 MG, QD, ORAL; 400 MG, QD, ORAL; 200 MG,, ORAL
     Dates: start: 20091020
  2. GLEEVEC [Suspect]
     Indication: CHRONIC MYELOID LEUKAEMIA
     Dosage: 400 MG, QD, ORAL; 400 MG, QD, ORAL; 200 MG,, ORAL
     Dates: start: 20081223
  3. AMBIEN [Concomitant]
  4. PROPRANOLOL [Concomitant]
  5. CYMBALTA [Concomitant]
  6. ELESTAT (EPINASTINE HYDROCHLORIDE) [Concomitant]
  7. VYTORIN [Concomitant]
  8. CELEBREX [Concomitant]
  9. NEXIUM [Concomitant]
  10. TANDEM (FERROUS FUMARATE, POLYSACCHARIDE-IRON COMPLEX) [Concomitant]
  11. HYDROCODONE BITARTRATE [Concomitant]
  12. LYRICA [Concomitant]
  13. PREMARIN [Concomitant]

REACTIONS (4)
  - JOINT SWELLING [None]
  - OEDEMA PERIPHERAL [None]
  - FLUID RETENTION [None]
  - MUSCLE SPASMS [None]
